FAERS Safety Report 10743700 (Version 1)
Quarter: 2015Q1

REPORT INFORMATION
  Report Type: Spontaneous
  Country: US (occurrence: US)
  Receive Date: 20150128
  Receipt Date: 20150128
  Transmission Date: 20150721
  Serious: Yes (Hospitalization)
  Sender: FDA-Public Use
  Company Number: US-RECORDATI RARE DISEASES-US-R13005-15-00011

PATIENT
  Age: 27 Year
  Sex: Female

DRUGS (1)
  1. METHAMPHETAMINE [Suspect]
     Active Substance: METHAMPHETAMINE
     Indication: PRODUCT USED FOR UNKNOWN INDICATION
     Route: 065

REACTIONS (18)
  - Pseudovasculitis [Recovered/Resolved]
  - Seizure [None]
  - Neurological symptom [None]
  - Drug abuse [Recovered/Resolved]
  - Haematuria [None]
  - Renal tubular necrosis [None]
  - Proteinuria [None]
  - Headache [None]
  - Sepsis [None]
  - Arthralgia [None]
  - Pharyngeal haemorrhage [None]
  - Tachycardia [None]
  - Haematocrit decreased [None]
  - Kidney fibrosis [None]
  - Pulmonary renal syndrome [Recovered/Resolved]
  - Aspartate aminotransferase increased [None]
  - Atypical pneumonia [None]
  - Alanine aminotransferase increased [None]
